FAERS Safety Report 23522579 (Version 1)
Quarter: 2024Q1

REPORT INFORMATION
  Report Type: Spontaneous
  Country: GB (occurrence: GB)
  Receive Date: 20240214
  Receipt Date: 20240214
  Transmission Date: 20240409
  Serious: Yes (Hospitalization)
  Sender: FDA-Public Use
  Company Number: None

PATIENT
  Age: 90 Year

DRUGS (10)
  1. LANSOPRAZOLE [Suspect]
     Active Substance: LANSOPRAZOLE
     Dosage: OD
     Route: 065
  2. FLUCONAZOLE [Concomitant]
     Active Substance: FLUCONAZOLE
     Dosage: ONE TO BE TAKEN AS A SINGLE DOSE
  3. CLOTRIMAZOLE [Concomitant]
     Active Substance: CLOTRIMAZOLE
     Dosage: TIME INTERVAL: 0.33333333 DAYS
  4. BIVALENT SPIKEVAX [Concomitant]
     Dosage: SPIKEVAX ORIGINAL/OMICRON BA.4/BA.5 DISPERSION FOR INJECTION 0.1 MG / ML MULTIDOSE VIALS
  5. COCODAMOL [Concomitant]
     Active Substance: ACETAMINOPHEN\CODEINE PHOSPHATE
     Dosage: ONE OR TWO TO BE TAKEN FOUR TIMES DAILY AS REQUIRED - TAKES PRN, FORM STRENGTH: 8 MG / 500 MG
  6. FENBID [Concomitant]
     Dosage: ADVANZ PHARMA, APPLY UP TO THREE TIMES A DAY
  7. BISOPROLOL [Concomitant]
     Active Substance: BISOPROLOL\BISOPROLOL FUMARATE
     Dosage: ONE TO BE TAKEN EACH DAY, BUT TAKE AN EXTRA TABLET AS ^PILL IN THE POCKET^ IF REQUIRED AS PER CAR...
  8. LACTULOSE [Concomitant]
     Active Substance: LACTULOSE
     Indication: Constipation
     Dosage: TWO TO THREE 5 ML SPOONFULS TO BE TAKEN TWICE A DAY, WHEN REQUIRED FOR CONSTIPATION - RARELY USES
  9. POTASSIUM BICARBONATE\SODIUM ALGINATE [Concomitant]
     Active Substance: POTASSIUM BICARBONATE\SODIUM ALGINATE
     Dosage: TWO 5 ML SPOONSFUL THREE TIMES A DAY - PRN
  10. APIXABAN [Concomitant]
     Active Substance: APIXABAN

REACTIONS (1)
  - Femur fracture [Recovering/Resolving]
